FAERS Safety Report 16281321 (Version 2)
Quarter: 2019Q2

REPORT INFORMATION
  Report Type: Other
  Country: NL (occurrence: NL)
  Receive Date: 20190507
  Receipt Date: 20190516
  Transmission Date: 20190711
  Serious: Yes (Hospitalization, Other)
  Sender: FDA-Public Use
  Company Number: NL-ASPEN-GLO2019NL003875

PATIENT
  Age: 26 Year
  Sex: Female

DRUGS (10)
  1. CETIRIZINE HYDROCHLORIDE. [Suspect]
     Active Substance: CETIRIZINE HYDROCHLORIDE
     Indication: ANGIOEDEMA
     Dosage: 20 MG, BID, MAINTENANCE
     Route: 065
  2. EPINEPHRINE HYDROCHLORIDE. [Suspect]
     Active Substance: EPINEPHRINE HYDROCHLORIDE
     Indication: ANGIOEDEMA
     Dosage: 0.5 MG
     Route: 065
  3. EPINEPHRINE HYDROCHLORIDE. [Suspect]
     Active Substance: EPINEPHRINE HYDROCHLORIDE
     Indication: HEREDITARY ANGIOEDEMA
     Dosage: UNK
     Route: 065
  4. TRANEXAMIC ACID. [Concomitant]
     Active Substance: TRANEXAMIC ACID
     Indication: ANGIOEDEMA
     Dosage: 1000 MG, TID
     Route: 065
  5. DEXAMETHASONE. [Suspect]
     Active Substance: DEXAMETHASONE
     Indication: HEREDITARY ANGIOEDEMA
  6. CLEMASTINE [Suspect]
     Active Substance: CLEMASTINE
     Indication: ANGIOEDEMA
     Dosage: 2 MG
     Route: 042
  7. DEXAMETHASONE. [Suspect]
     Active Substance: DEXAMETHASONE
     Indication: ANGIOEDEMA
     Dosage: 4 MG. DURING TWO SUCCESSIVE ACUTE ATTACKS OF ANGIOEDEMA.
     Route: 065
  8. DANAZOL. [Suspect]
     Active Substance: DANAZOL
     Indication: ANGIOEDEMA
     Dosage: 200 MG, QD
     Route: 065
  9. RANITIDINE HYDROCHLORIDE. [Suspect]
     Active Substance: RANITIDINE HYDROCHLORIDE
     Indication: ANGIOEDEMA
     Dosage: 300 MG, BID, MAINTENANCE THERAPY
     Route: 065
  10. CLEMASTINE [Suspect]
     Active Substance: CLEMASTINE
     Indication: HEREDITARY ANGIOEDEMA

REACTIONS (3)
  - Therapy non-responder [Unknown]
  - Drug ineffective [Unknown]
  - Myopathy [Recovered/Resolved]
